FAERS Safety Report 9664334 (Version 3)
Quarter: 2013Q4

REPORT INFORMATION
  Report Type: Spontaneous
  Country: IN (occurrence: IN)
  Receive Date: 20131101
  Receipt Date: 20131226
  Transmission Date: 20140711
  Serious: Yes (Other)
  Sender: FDA-Public Use
  Company Number: IN-RANBAXY-2013RR-74786

PATIENT
  Age: 30 Year
  Sex: Male

DRUGS (5)
  1. DICLOFENAC [Suspect]
     Indication: PYREXIA
     Dosage: UNK, BID
     Route: 030
  2. DICLOFENAC [Suspect]
     Indication: NASOPHARYNGITIS
  3. PARACETAMOL [Suspect]
     Indication: PYREXIA
     Dosage: UNK, TID
     Route: 065
  4. PARACETAMOL [Suspect]
     Indication: NASOPHARYNGITIS
  5. TAXIM-O [Suspect]
     Indication: NASOPHARYNGITIS

REACTIONS (1)
  - Erythema multiforme [Recovered/Resolved]
